FAERS Safety Report 14117914 (Version 1)
Quarter: 2017Q4

REPORT INFORMATION
  Report Type: Spontaneous
  Country: None (occurrence: US)
  Receive Date: 20171023
  Receipt Date: 20171023
  Transmission Date: 20180321
  Serious: No
  Sender: FDA-Public Use
  Company Number: US-ALLERGAN-1705100US

PATIENT
  Sex: Female

DRUGS (2)
  1. LINZESS [Suspect]
     Active Substance: LINACLOTIDE
     Dosage: 290 UNK, UNK
  2. LINZESS [Suspect]
     Active Substance: LINACLOTIDE
     Indication: IRRITABLE BOWEL SYNDROME
     Dosage: 145 UNK, UNK
     Route: 048
     Dates: start: 201509

REACTIONS (4)
  - Diarrhoea [Unknown]
  - Off label use [Unknown]
  - Drug ineffective [Unknown]
  - Abdominal pain [Unknown]
